FAERS Safety Report 13442799 (Version 1)
Quarter: 2017Q2

REPORT INFORMATION
  Report Type: Spontaneous
  Country: US (occurrence: US)
  Receive Date: 20170413
  Receipt Date: 20170413
  Transmission Date: 20170830
  Serious: Yes (Hospitalization)
  Sender: FDA-Public Use
  Company Number: None

PATIENT
  Age: 78 Year
  Sex: Male
  Weight: 89.13 kg

DRUGS (1)
  1. WARFARIN [Suspect]
     Active Substance: WARFARIN
     Indication: ATRIAL FIBRILLATION
     Route: 048
     Dates: start: 20110511, end: 20170316

REACTIONS (9)
  - Faeces discoloured [None]
  - International normalised ratio increased [None]
  - Acute kidney injury [None]
  - Arteriovenous malformation [None]
  - Diarrhoea [None]
  - Dehydration [None]
  - Gastrointestinal haemorrhage [None]
  - Gastric haemorrhage [None]
  - Anaemia [None]

NARRATIVE: CASE EVENT DATE: 20170316
